FAERS Safety Report 9124080 (Version 1)
Quarter: 2013Q1

REPORT INFORMATION
  Report Type: Spontaneous
  Country: NL (occurrence: NL)
  Receive Date: 20130116
  Receipt Date: 20130116
  Transmission Date: 20140127
  Serious: Yes (Hospitalization)
  Sender: FDA-Public Use
  Company Number: NL-009507513-1301NLD004310

PATIENT
  Age: 81 Year
  Sex: Male

DRUGS (7)
  1. LOSARTAN POTASSIUM [Suspect]
     Indication: HYPERTENSION
     Dosage: 50 MG,QD
     Route: 048
     Dates: start: 201201, end: 20121129
  2. NIFEDIPINE [Concomitant]
     Dosage: 1 DF, QD
  3. METFORMIN [Concomitant]
     Dosage: 500 MG, TID
  4. TOLBUTAMIDE [Concomitant]
     Dosage: 100 MG, BID
  5. GEMFIBROZIL [Concomitant]
     Dosage: 600 MG, BID
  6. PANTOPRAZOLE [Concomitant]
     Dosage: 40 MG, QD
  7. ASCAL BRISPER [Concomitant]
     Dosage: 38 MG, QD

REACTIONS (4)
  - Mouth haemorrhage [Recovering/Resolving]
  - Thrombocytopenia [Recovering/Resolving]
  - Leukopenia [Recovering/Resolving]
  - Petechiae [Recovering/Resolving]
